FAERS Safety Report 25769365 (Version 1)
Quarter: 2025Q3

REPORT INFORMATION
  Report Type: Spontaneous
  Country: CN (occurrence: CN)
  Receive Date: 20250906
  Receipt Date: 20250906
  Transmission Date: 20251020
  Serious: Yes (Other)
  Sender: AMGEN
  Company Number: CN-AMGEN-CHNSP2025172330

PATIENT

DRUGS (4)
  1. XGEVA [Suspect]
     Active Substance: DENOSUMAB
     Indication: Aneurysmal bone cyst
     Dosage: 70 MILLIGRAM/SQ. METER, QWK FOR 4 WEEKS LOADING PHASE
     Route: 065
  2. XGEVA [Suspect]
     Active Substance: DENOSUMAB
     Dosage: 70 MILLIGRAM/SQ. METER, QMO MAINTENANCE PHASE
     Route: 065
  3. CALCIUM ACETATE [Concomitant]
     Active Substance: CALCIUM ACETATE
     Indication: Supplementation therapy
     Route: 065
  4. CALCITRIOL [Concomitant]
     Active Substance: CALCITRIOL
     Indication: Supplementation therapy
     Route: 065

REACTIONS (6)
  - Myelopathy [Unknown]
  - Loss of personal independence in daily activities [Recovered/Resolved]
  - Cervical radiculopathy [Unknown]
  - Muscular weakness [Unknown]
  - Off label use [Unknown]
  - Drug effective for unapproved indication [Unknown]
